FAERS Safety Report 12799617 (Version 2)
Quarter: 2016Q4

REPORT INFORMATION
  Report Type: Spontaneous
  Country: FR (occurrence: FR)
  Receive Date: 20160930
  Receipt Date: 20161012
  Transmission Date: 20170207
  Serious: Yes (Hospitalization, Other)
  Sender: FDA-Public Use
  Company Number: FR-BAYER-2016-189323

PATIENT
  Age: 26 Year
  Sex: Female

DRUGS (1)
  1. JAYDESS [Suspect]
     Active Substance: LEVONORGESTREL
     Indication: CONTRACEPTION
     Dosage: 14 MCG/24HR, CONT
     Route: 015
     Dates: start: 201601, end: 201608

REACTIONS (4)
  - Procedural haemorrhage [None]
  - Salpingectomy [None]
  - Drug ineffective [None]
  - Ectopic pregnancy with contraceptive device [Recovered/Resolved with Sequelae]

NARRATIVE: CASE EVENT DATE: 201608
